FAERS Safety Report 4985672-5 (Version None)
Quarter: 2006Q2

REPORT INFORMATION
  Report Type: 
  Country: None (occurrence: None)
  Receive Date: 20060428
  Receipt Date: 20050914
  Transmission Date: 20061013
  Serious: Yes (Hospitalization)
  Sender: FDA-Public Use
  Company Number: US-GLAXOSMITHKLINE-A0574247A

PATIENT
  Age: 62 Year
  Sex: Female

DRUGS (11)
  1. ZOFRAN [Suspect]
     Indication: PROPHYLAXIS OF NAUSEA AND VOMITING
     Dosage: 8MG FOUR TIMES PER DAY
     Route: 042
     Dates: start: 20050910
  2. GEMZAR [Concomitant]
  3. METOCLOPRAMIDE [Concomitant]
  4. LEVAQUIN [Concomitant]
  5. NEUPOGEN [Concomitant]
  6. PEPCID [Concomitant]
  7. ZOSYN [Concomitant]
  8. TPN [Concomitant]
  9. MORPHINE [Concomitant]
     Route: 042
  10. INSULIN [Concomitant]
  11. BELLADONNA/OPIUM SUPPOSITORY [Concomitant]
     Route: 054

REACTIONS (4)
  - DRUG INEFFECTIVE [None]
  - HEPATIC ENZYME INCREASED [None]
  - NAUSEA [None]
  - VOMITING [None]
